FAERS Safety Report 16860831 (Version 4)
Quarter: 2019Q4

REPORT INFORMATION
  Report Type: Spontaneous
  Country: ES (occurrence: ES)
  Receive Date: 20190927
  Receipt Date: 20191130
  Transmission Date: 20200122
  Serious: Yes (Other)
  Sender: FDA-Public Use
  Company Number: ES-ACCORD-155763

PATIENT
  Age: 41 Year
  Sex: Male

DRUGS (22)
  1. AMITRIPTYLINE [Suspect]
     Active Substance: AMITRIPTYLINE
     Indication: MIGRAINE
     Dosage: 10 MG, QD,NOV-2012
     Route: 065
     Dates: start: 201110
  2. PREDNISONE. [Suspect]
     Active Substance: PREDNISONE
     Indication: MIGRAINE
     Dosage: 60 MG, QD
     Route: 065
  3. LISALGIL [Suspect]
     Active Substance: METAMIZOLE SODIUM
     Indication: PRODUCT USED FOR UNKNOWN INDICATION
  4. IBUPROFEN. [Suspect]
     Active Substance: IBUPROFEN
     Indication: MIGRAINE
     Route: 065
  5. LAMOTRIGINE. [Suspect]
     Active Substance: LAMOTRIGINE
     Indication: MIGRAINE
     Dosage: 50 MG, QD
     Route: 065
     Dates: start: 201110
  6. HEMICRANEAL (ACETAMINOPHEN\CAFFEINE\ERGOTAMINE TARTRATE) [Suspect]
     Active Substance: ACETAMINOPHEN\CAFFEINE\ERGOTAMINE TARTRATE
     Indication: MIGRAINE
     Route: 065
  7. AMITRIPTYLINE HYDROCHLORIDE. [Suspect]
     Active Substance: AMITRIPTYLINE HYDROCHLORIDE
     Indication: MIGRAINE
     Dosage: 1 DF, QD
     Route: 065
  8. LEXATIN (BROMAZEPAM) [Suspect]
     Active Substance: BROMAZEPAM
     Indication: MIGRAINE
     Dosage: 3 MG, UNK
     Route: 065
  9. BOTOX [Suspect]
     Active Substance: ONABOTULINUMTOXINA
     Indication: MIGRAINE
     Dosage: 150 IU,100 IU
     Route: 065
     Dates: start: 201110
  10. VOLTAREN [Suspect]
     Active Substance: DICLOFENAC SODIUM
     Indication: MIGRAINE
     Dosage: UNK
     Route: 065
  11. TOPIRAMATE. [Suspect]
     Active Substance: TOPIRAMATE
     Indication: MIGRAINE
     Dosage: 50 MG, UNK
     Route: 065
     Dates: start: 200906
  12. DEPAKINE [Suspect]
     Active Substance: VALPROATE SODIUM
     Indication: MIGRAINE
     Dosage: 500 MG, UNK
     Route: 065
     Dates: start: 201211
  13. BOTOX [Suspect]
     Active Substance: ONABOTULINUMTOXINA
     Indication: MIGRAINE
     Dosage: 100 IU,
     Route: 065
     Dates: start: 201110
  14. TOPIRAMATE. [Suspect]
     Active Substance: TOPIRAMATE
     Indication: MIGRAINE
     Dosage: 25 MG QD
     Route: 065
     Dates: start: 200906, end: 200906
  15. ZOMIG [Suspect]
     Active Substance: ZOLMITRIPTAN
     Indication: MIGRAINE
     Route: 065
  16. PAROXETINE. [Suspect]
     Active Substance: PAROXETINE
     Indication: MIGRAINE
     Dosage: UNK
     Route: 065
  17. RELPAX [Suspect]
     Active Substance: ELETRIPTAN HYDROBROMIDE
     Indication: MIGRAINE
     Route: 065
  18. NOLOTIL (METAMIZOLE SODIUM) [Suspect]
     Active Substance: METAMIZOLE SODIUM
     Indication: MIGRAINE
     Route: 065
  19. TRYPTIZOL [Suspect]
     Active Substance: AMITRIPTYLINE HYDROCHLORIDE
     Indication: MIGRAINE
     Dosage: 10 MG, QD,1 DOSAGE FORM
     Route: 065
     Dates: start: 201211
  20. XEOMIN [Suspect]
     Active Substance: INCOBOTULINUMTOXINA
     Indication: MIGRAINE
     Dosage: 150 IU,
     Route: 065
     Dates: start: 20130307
  21. MAXALT [Suspect]
     Active Substance: RIZATRIPTAN BENZOATE
     Indication: MIGRAINE
     Route: 065
  22. SIBELIUM (FLUNARIZINE) [Suspect]
     Active Substance: FLUNARIZINE
     Indication: MIGRAINE
     Dosage: 5 MG,
     Route: 065

REACTIONS (4)
  - Therapy partial responder [Unknown]
  - Insomnia [Unknown]
  - Drug abuse [Unknown]
  - Paraesthesia [Unknown]
